APPROVED DRUG PRODUCT: BREVIBLOC
Active Ingredient: ESMOLOL HYDROCHLORIDE
Strength: 10MG/ML
Dosage Form/Route: INJECTABLE;INJECTION
Application: N019386 | Product #003
Applicant: BAXTER HEALTHCARE CORP
Approved: Aug 15, 1988 | RLD: No | RS: No | Type: DISCN